FAERS Safety Report 25419072 (Version 1)
Quarter: 2025Q2

REPORT INFORMATION
  Report Type: Spontaneous
  Country: SE (occurrence: SE)
  Receive Date: 20250610
  Receipt Date: 20250610
  Transmission Date: 20250717
  Serious: Yes (Hospitalization, Disabling)
  Sender: UCB
  Company Number: None

PATIENT
  Age: 48 Year
  Sex: Female
  Weight: 70 kg

DRUGS (1)
  1. BIMZELX [Suspect]
     Active Substance: BIMEKIZUMAB-BKZX
     Indication: Product used for unknown indication
     Dosage: 160 MG EVERY 4 WEEKS
     Route: 058
     Dates: start: 20240719, end: 20250203

REACTIONS (3)
  - Postoperative wound infection [Not Recovered/Not Resolved]
  - Infection susceptibility increased [Not Recovered/Not Resolved]
  - Tendon necrosis [Not Recovered/Not Resolved]

NARRATIVE: CASE EVENT DATE: 20250226
